FAERS Safety Report 11937723 (Version 1)
Quarter: 2016Q1

REPORT INFORMATION
  Report Type: Report from Study
  Country: FR (occurrence: FR)
  Receive Date: 20160122
  Receipt Date: 20160122
  Transmission Date: 20160526
  Serious: Yes (Other)
  Sender: FDA-Public Use
  Company Number: FR-BRISTOL-MYERS SQUIBB COMPANY-11949757

PATIENT
  Age: 31 Year
  Sex: Female

DRUGS (2)
  1. MEPTAZINOL [Concomitant]
     Indication: PRODUCT USED FOR UNKNOWN INDICATION
     Dosage: UNK
     Route: 065
     Dates: start: 20020311, end: 2002
  2. ARIPIPRAZOLE. [Suspect]
     Active Substance: ARIPIPRAZOLE
     Indication: SCHIZOPHRENIA
     Route: 048
     Dates: start: 20001114, end: 20020527

REACTIONS (3)
  - Abortion spontaneous [Recovered/Resolved]
  - Pregnancy on contraceptive [Recovered/Resolved]
  - Amniotic cavity infection [Unknown]

NARRATIVE: CASE EVENT DATE: 20020808
